FAERS Safety Report 5360180-0 (Version None)
Quarter: 2007Q2

REPORT INFORMATION
  Report Type: 
  Country: None (occurrence: None)
  Receive Date: 20070618
  Receipt Date: 20070611
  Transmission Date: 20071010
  Serious: Yes (Life-Threatening, Hospitalization, Other)
  Sender: FDA-Public Use
  Company Number: PHNU2007DE02097

PATIENT
  Sex: Female

DRUGS (3)
  1. LAMPRENE [Suspect]
     Indication: CHEILITIS GRANULOMATOSA
     Dosage: 100 MG/DAY
     Dates: start: 20070301
  2. LAMPRENE [Suspect]
     Dosage: 200 MG/DAY
     Dates: start: 20070401
  3. LAMPRENE [Suspect]
     Dosage: 300 MG/DAY
     Dates: start: 20070501

REACTIONS (4)
  - CONVULSION [None]
  - LONG QT SYNDROME [None]
  - RESUSCITATION [None]
  - TORSADE DE POINTES [None]
